FAERS Safety Report 17916243 (Version 1)
Quarter: 2020Q2

REPORT INFORMATION
  Report Type: Spontaneous
  Country: US (occurrence: US)
  Receive Date: 20200619
  Receipt Date: 20200619
  Transmission Date: 20200714
  Serious: Yes (Hospitalization)
  Sender: FDA-Public Use
  Company Number: US-FRESENIUS KABI-FK202006002

PATIENT
  Age: 17 Year
  Sex: Female

DRUGS (2)
  1. INTRALIPID [Suspect]
     Active Substance: EGG PHOSPHOLIPIDS\GLYCERIN\SOYBEAN OIL
     Dosage: WHEN SHE HAD ACUTE INTOLERANCE TO INFUSION, THE LIPID DOSE WAS 234ML GIVEN TWICE WEEKLY
     Route: 042
     Dates: start: 20200608, end: 202006
  2. INTRALIPID [Suspect]
     Active Substance: EGG PHOSPHOLIPIDS\GLYCERIN\SOYBEAN OIL
     Indication: PARENTERAL NUTRITION
     Dosage: UNKNOWN, SHE HAD BEEN ON FOR PROBABLY 9-12 MONTHS.
     Route: 042
     Dates: start: 2019, end: 202004

REACTIONS (3)
  - Drug hypersensitivity [Recovered/Resolved]
  - Haemophagocytic lymphohistiocytosis [Recovered/Resolved]
  - Contraindicated product administered [Unknown]

NARRATIVE: CASE EVENT DATE: 202004
